FAERS Safety Report 19022440 (Version 1)
Quarter: 2021Q1

REPORT INFORMATION
  Report Type: Spontaneous
  Country: US (occurrence: US)
  Receive Date: 20210318
  Receipt Date: 20210318
  Transmission Date: 20210420
  Serious: No
  Sender: FDA-Public Use
  Company Number: US-STRIDES ARCOLAB LIMITED-2021SP002371

PATIENT
  Age: 24 Year
  Sex: Male

DRUGS (1)
  1. PREDNISOLONE. [Suspect]
     Active Substance: PREDNISOLONE
     Indication: TRAUMATIC LUNG INJURY
     Dosage: 40 MILLIGRAM, PER DAY
     Route: 065

REACTIONS (1)
  - Off label use [Unknown]
